FAERS Safety Report 8965432 (Version 1)
Quarter: 2012Q4

REPORT INFORMATION
  Report Type: 
  Country: US (occurrence: US)
  Receive Date: 20121213
  Receipt Date: 20121213
  Transmission Date: 20130627
  Serious: Yes (Hospitalization)
  Sender: FDA-Public Use
  Company Number: US-BAYER-2012-129856

PATIENT
  Age: 31 Year
  Sex: Female
  Weight: 53.97 kg

DRUGS (5)
  1. YAZ [Suspect]
     Dosage: UNK
  2. LIALDA [Concomitant]
     Dosage: 1.2 g, UNK
  3. PREDNISONE [Concomitant]
     Dosage: 10 mg, UNK
  4. PROPYLTHIOURACIL [Concomitant]
     Dosage: 50 mg, BID
     Route: 048
  5. CYANOCOBALAMIN [Concomitant]
     Dosage: 1000 ?g/ml, ONCE
     Route: 048

REACTIONS (1)
  - Deep vein thrombosis [None]
